FAERS Safety Report 4539166-1 (Version None)
Quarter: 2005Q1

REPORT INFORMATION
  Report Type: 
  Country: None (occurrence: None)
  Receive Date: 20041223
  Receipt Date: 20041104
  Transmission Date: 20050727
  Serious: No
  Sender: FDA-Public Use
  Company Number: US-JNJFOC-20041101953

PATIENT
  Age: 29 Year
  Sex: Female
  Weight: 58.9676 kg

DRUGS (5)
  1. ORTHO EVRA [Suspect]
     Indication: CONTRACEPTION
     Dosage: 1 DOSE(S), 3 IN 4 WEEK, TRANSDERMAL
     Route: 062
     Dates: start: 20041029, end: 20041103
  2. PROVIGIL [Concomitant]
  3. DEPAKOTE ER [Concomitant]
  4. VALTREX [Concomitant]
  5. ADVIL [Concomitant]

REACTIONS (2)
  - ACNE [None]
  - BACK PAIN [None]
